FAERS Safety Report 16090510 (Version 1)
Quarter: 2019Q1

REPORT INFORMATION
  Report Type: Spontaneous
  Country: US (occurrence: US)
  Receive Date: 20190319
  Receipt Date: 20190319
  Transmission Date: 20190418
  Serious: No
  Sender: FDA-Public Use
  Company Number: US-TAKEDA-2019TUS014021

PATIENT
  Age: 60 Year
  Sex: Male

DRUGS (2)
  1. ENTYVIO [Suspect]
     Active Substance: VEDOLIZUMAB
     Indication: CROHN^S DISEASE
     Dosage: UNK
     Route: 042
     Dates: start: 20190308
  2. ENTYVIO [Suspect]
     Active Substance: VEDOLIZUMAB
     Indication: COLITIS ULCERATIVE

REACTIONS (3)
  - Balance disorder [Unknown]
  - Headache [Unknown]
  - Pain [Unknown]

NARRATIVE: CASE EVENT DATE: 20190308
